FAERS Safety Report 8987466 (Version 1)
Quarter: 2012Q4

REPORT INFORMATION
  Report Type: 
  Country: CH (occurrence: CH)
  Receive Date: 20121227
  Receipt Date: 20121227
  Transmission Date: 20130627
  Serious: Yes (Hospitalization)
  Sender: FDA-Public Use
  Company Number: CH-PFIZER INC-2012326276

PATIENT
  Age: 69 Year
  Sex: Male

DRUGS (6)
  1. SPIRONOLACTONE [Suspect]
     Dosage: 100 mg, daily
  2. FUROSEMIDE [Concomitant]
  3. DIGOXIN [Concomitant]
  4. ACENOCOUMAROL [Concomitant]
  5. SIMVASTATIN [Concomitant]
  6. GLIBENCLAMIDE [Concomitant]

REACTIONS (3)
  - Acquired haemophilia [Recovered/Resolved]
  - Breast cancer [Recovered/Resolved]
  - Gynaecomastia [Recovering/Resolving]
